FAERS Safety Report 15757506 (Version 1)
Quarter: 2018Q4

REPORT INFORMATION
  Report Type: Spontaneous
  Country: US (occurrence: US)
  Receive Date: 20181224
  Receipt Date: 20181224
  Transmission Date: 20190205
  Serious: No
  Sender: FDA-Public Use
  Company Number: US-TEIKOKU PHARMA USA-TPU2018-00857

PATIENT
  Sex: Female
  Weight: 78.09 kg

DRUGS (3)
  1. LIDOCAINE PATCH [Suspect]
     Active Substance: LIDOCAINE
     Indication: BACK PAIN
     Dosage: 2 PATCHES APPLIED TO HIP FOR 12 HOURS ON, 12 HOURS OFF, ONCE LAST WEEK
     Route: 061
     Dates: start: 201811, end: 201811
  2. LIDOCAINE PATCH [Suspect]
     Active Substance: LIDOCAINE
     Indication: ARTHRALGIA
  3. LIDOCAINE PATCH [Suspect]
     Active Substance: LIDOCAINE
     Indication: ARTHRALGIA
     Dosage: 1 PATCH APPLIED TO HIP FOR 12 HOURS ON, 12 HOURS OFF
     Route: 061

REACTIONS (1)
  - Intentional product misuse [Unknown]
